FAERS Safety Report 16069291 (Version 1)
Quarter: 2019Q1

REPORT INFORMATION
  Report Type: Spontaneous
  Country: RU (occurrence: RU)
  Receive Date: 20190313
  Receipt Date: 20190313
  Transmission Date: 20190418
  Serious: Yes (Other)
  Sender: FDA-Public Use
  Company Number: PHHY2018RU149303

PATIENT
  Sex: Male

DRUGS (1)
  1. FAMVIR [Suspect]
     Active Substance: FAMCICLOVIR
     Indication: PRODUCT USED FOR UNKNOWN INDICATION
     Dosage: 125 MG, UNK
     Route: 065
     Dates: start: 2017

REACTIONS (6)
  - Nausea [Unknown]
  - Headache [Not Recovered/Not Resolved]
  - Nervous system disorder [Unknown]
  - Photophobia [Unknown]
  - Cerebrovascular accident [Unknown]
  - Nuclear magnetic resonance imaging brain abnormal [Unknown]
